FAERS Safety Report 14382687 (Version 1)
Quarter: 2018Q1

REPORT INFORMATION
  Report Type: Spontaneous
  Country: DE (occurrence: DE)
  Receive Date: 20180112
  Receipt Date: 20180112
  Transmission Date: 20180509
  Serious: Yes (Hospitalization)
  Sender: FDA-Public Use
  Company Number: DE-MERCK KGAA-2040029

PATIENT
  Sex: Female

DRUGS (2)
  1. VIGANTOLETTEN [Suspect]
     Active Substance: CHOLECALCIFEROL
     Dates: start: 20171127
  2. NOVOTHYROX [Suspect]
     Active Substance: LEVOTHYROXINE SODIUM
     Indication: PRODUCT USED FOR UNKNOWN INDICATION
     Dates: start: 1987

REACTIONS (9)
  - Stress [None]
  - Crying [None]
  - Swelling face [None]
  - Dyspnoea [None]
  - Salt craving [None]
  - Memory impairment [None]
  - Extra dose administered [None]
  - Face injury [Recovered/Resolved]
  - Nasal congestion [None]

NARRATIVE: CASE EVENT DATE: 2017
